FAERS Safety Report 9294101 (Version 1)
Quarter: 2013Q2

REPORT INFORMATION
  Report Type: Spontaneous
  Country: US (occurrence: None)
  Receive Date: 20130514
  Receipt Date: 20130514
  Transmission Date: 20140414
  Serious: Yes (Hospitalization)
  Sender: FDA-Public Use
  Company Number: JPI-P-031460

PATIENT
  Age: 37 Year
  Sex: Female
  Weight: 72.58 kg

DRUGS (3)
  1. XYREM [Suspect]
     Indication: NARCOLEPSY
     Dosage: 4.5 GM (2.25 GM, 2 IN 1 D), ORAL
     Route: 048
     Dates: start: 20130418, end: 20130419
  2. XYREM [Suspect]
     Indication: SOMNOLENCE
     Dosage: 4.5 GM (2.25 GM, 2 IN 1 D), ORAL
     Route: 048
     Dates: start: 20130418, end: 20130419
  3. VENLAFAXINE [Concomitant]

REACTIONS (7)
  - Migraine [None]
  - Decreased appetite [None]
  - Eyelid margin crusting [None]
  - Hyperhidrosis [None]
  - Vomiting [None]
  - Eye irritation [None]
  - Drug dose omission [None]
